FAERS Safety Report 8455071-2 (Version None)
Quarter: 2012Q2

REPORT INFORMATION
  Report Type: 
  Country: None (occurrence: None)
  Receive Date: 20120615
  Receipt Date: 20120615
  Transmission Date: 20120825
  Serious: Yes (Death, Hospitalization)
  Sender: FDA-Public Use
  Company Number: None

PATIENT
  Age: 48 Year
  Sex: Female
  Weight: 102.5129 kg

DRUGS (1)
  1. CHANTIX [Suspect]
     Indication: SMOKING CESSATION THERAPY
     Dosage: 0.5 DAILY ; 1 MG 2 DAILY

REACTIONS (5)
  - DYSPNOEA [None]
  - HYPERHIDROSIS [None]
  - DIZZINESS [None]
  - HEADACHE [None]
  - NAUSEA [None]
